FAERS Safety Report 18936397 (Version 2)
Quarter: 2022Q1

REPORT INFORMATION
  Report Type: Spontaneous
  Country: US (occurrence: US)
  Receive Date: 20210224
  Receipt Date: 20220120
  Transmission Date: 20220423
  Serious: No
  Sender: FDA-Public Use
  Company Number: US-TERSERA THERAPEUTICS LLC-2020TRS002942

PATIENT

DRUGS (4)
  1. PRIALT [Suspect]
     Active Substance: ZICONOTIDE ACETATE
     Indication: Back pain
     Dosage: 2.704 MCG (20.0 MCG/ML) (0.250MCG-4.688MCG)
     Route: 037
  2. PRIALT [Suspect]
     Active Substance: ZICONOTIDE ACETATE
     Dosage: 2.89811 MCG, QD (2.9 MEQ/DL) (CONCENTRATION: 20 MCG)
     Route: 037
  3. BUPIVACAINE [Suspect]
     Active Substance: BUPIVACAINE
     Indication: Product used for unknown indication
     Dosage: 0.135 MG, QD (0.0125MG-0.2344MG)
     Route: 037
  4. BUPIVACAINE [Suspect]
     Active Substance: BUPIVACAINE
     Dosage: 0.14491 MG, QD (CONCENTRATION: 1 MG)
     Route: 037

REACTIONS (3)
  - Medical device site infection [Recovered/Resolved]
  - Off label use [Unknown]
  - Drug ineffective [Unknown]
